FAERS Safety Report 5479764-4 (Version None)
Quarter: 2007Q4

REPORT INFORMATION
  Report Type: 
  Country: None (occurrence: None)
  Receive Date: 20071008
  Receipt Date: 20071002
  Transmission Date: 20080405
  Serious: Yes (Other)
  Sender: FDA-Public Use
  Company Number: BR-SHR-BR-2007-037132

PATIENT
  Sex: Female

DRUGS (3)
  1. YAZ [Suspect]
     Indication: ORAL CONTRACEPTION
     Dosage: 1 TAB(S), 1 DOSE
     Route: 048
     Dates: start: 20070901, end: 20070901
  2. YAZ [Suspect]
     Dosage: 1 TAB(S), UNK
     Route: 048
     Dates: start: 20071001
  3. POZATO UNI [Concomitant]
     Indication: POST COITAL CONTRACEPTION
     Dosage: UNK, 1 DOSE
     Route: 048

REACTIONS (1)
  - APPENDICITIS [None]
